FAERS Safety Report 7142725-3 (Version None)
Quarter: 2010Q4

REPORT INFORMATION
  Report Type: 
  Country: None (occurrence: None)
  Receive Date: 20101207
  Receipt Date: 20101130
  Transmission Date: 20110411
  Serious: Yes (Other)
  Sender: FDA-Public Use
  Company Number: US-GENENTECH-309152

PATIENT
  Sex: Male
  Weight: 10.884 kg

DRUGS (1)
  1. XOLAIR [Suspect]
     Indication: ASTHMA
     Dosage: UNK
     Route: 064

REACTIONS (3)
  - ECZEMA [None]
  - HYPERSENSITIVITY [None]
  - SPEECH DISORDER [None]
